FAERS Safety Report 21581432 (Version 1)
Quarter: 2022Q4

REPORT INFORMATION
  Report Type: Spontaneous
  Country: JP (occurrence: JP)
  Receive Date: 20221111
  Receipt Date: 20221111
  Transmission Date: 20230113
  Serious: Yes (Other)
  Sender: FDA-Public Use
  Company Number: JP-CHUGAI-2022044621

PATIENT
  Sex: Male
  Weight: 60.9 kg

DRUGS (9)
  1. AVASTIN [Suspect]
     Active Substance: BEVACIZUMAB
     Indication: Rectal cancer
     Dosage: 295 MILLIGRAM, ONCE/2WEEKS
     Route: 041
     Dates: start: 20141024, end: 20141128
  2. OXALIPLATIN [Concomitant]
     Active Substance: OXALIPLATIN
     Indication: Rectal cancer
     Dosage: 140 MILLIGRAM, ONCE/2WEEKS
     Route: 041
     Dates: start: 20141024, end: 20141128
  3. OXALIPLATIN [Concomitant]
     Active Substance: OXALIPLATIN
     Dosage: 140 MILLIGRAM, ONCE/2WEEKS
     Route: 041
     Dates: start: 20141212
  4. LEVOLEUCOVORIN CALCIUM [Concomitant]
     Active Substance: LEVOLEUCOVORIN CALCIUM
     Indication: Rectal cancer
     Dosage: 330 MILLIGRAM, ONCE/2WEEKS
     Route: 041
     Dates: start: 20141024, end: 20141028
  5. LEVOLEUCOVORIN CALCIUM [Concomitant]
     Active Substance: LEVOLEUCOVORIN CALCIUM
     Dosage: 330 MILLIGRAM, ONCE/2WEEKS
     Route: 041
     Dates: start: 20141212
  6. FLUOROURACIL [Concomitant]
     Active Substance: FLUOROURACIL
     Indication: Rectal cancer
     Dosage: 650 MICROGRAM, ONCE/2WEEKS
     Route: 042
     Dates: start: 20141024, end: 20141128
  7. FLUOROURACIL [Concomitant]
     Active Substance: FLUOROURACIL
     Dosage: 4000 MICROGRAM, ONCE/2WEEKS
     Route: 042
     Dates: start: 20141024, end: 20141130
  8. FLUOROURACIL [Concomitant]
     Active Substance: FLUOROURACIL
     Dosage: 650 MICROGRAM, ONCE/2WEEKS
     Route: 042
     Dates: start: 20141212
  9. FLUOROURACIL [Concomitant]
     Active Substance: FLUOROURACIL
     Dosage: 4000 MICROGRAM, ONCE/2WEEKS
     Route: 042
     Dates: start: 20141212

REACTIONS (1)
  - Tumour perforation [Recovered/Resolved]

NARRATIVE: CASE EVENT DATE: 20141203
